FAERS Safety Report 7164726-1 (Version None)
Quarter: 2010Q4

REPORT INFORMATION
  Report Type: 
  Country: None (occurrence: None)
  Receive Date: 20101215
  Receipt Date: 20101207
  Transmission Date: 20110411
  Serious: Yes (Other)
  Sender: FDA-Public Use
  Company Number: ES-PFIZER INC-2010166601

PATIENT
  Age: 76 Year
  Sex: Female

DRUGS (1)
  1. VANDRAL RETARD [Suspect]
     Dosage: 150 MG, UNK
     Dates: start: 20090101

REACTIONS (3)
  - HAEMORRHAGE [None]
  - PETECHIAE [None]
  - THROMBOCYTOPENIA [None]
